FAERS Safety Report 6887728-9 (Version None)
Quarter: 2010Q3

REPORT INFORMATION
  Report Type: 
  Country: None (occurrence: None)
  Receive Date: 20100730
  Receipt Date: 20100720
  Transmission Date: 20110219
  Serious: Yes (Other)
  Sender: FDA-Public Use
  Company Number: DE-ROCHE-707967

PATIENT
  Sex: Male
  Weight: 72 kg

DRUGS (4)
  1. METHOXY POLYETHYLENE GLYCOL-EPOETIN BETA [Suspect]
     Route: 058
     Dates: start: 20081126
  2. EPOETIN BETA [Suspect]
     Route: 058
     Dates: start: 20031224
  3. AZATHIOPRINE [Concomitant]
     Dosage: ONLY TEMPORALLY GIVEN IN 2009.
     Dates: start: 20090101
  4. ANGIOTENSIN-II RECEPTOR ANTAGONIST NOS [Concomitant]

REACTIONS (2)
  - HAEMOGLOBIN DECREASED [None]
  - PERNICIOUS ANAEMIA [None]
